FAERS Safety Report 6399387-2 (Version None)
Quarter: 2009Q4

REPORT INFORMATION
  Report Type: 
  Country: None (occurrence: None)
  Receive Date: 20091007
  Receipt Date: 20091007
  Transmission Date: 20100525
  Serious: No
  Sender: FDA-Public Use
  Company Number: None

PATIENT

DRUGS (2)
  1. CASODEX [Suspect]
     Indication: PROSTATE CANCER
     Dosage: 10 MG ONCE DAILY PO
     Route: 048
     Dates: start: 20090717
  2. RAD001 [Suspect]
     Indication: PROSTATE CANCER
     Dosage: 50MG ONCE DAILY PO
     Route: 048
     Dates: start: 20090717

REACTIONS (5)
  - HYPOCALCAEMIA [None]
  - HYPOKALAEMIA [None]
  - LYMPHADENOPATHY [None]
  - MUSCLE STRAIN [None]
  - SCROTAL SWELLING [None]
